FAERS Safety Report 11302619 (Version 2)
Quarter: 2015Q3

REPORT INFORMATION
  Report Type: Report from Study
  Country: US (occurrence: US)
  Receive Date: 20150723
  Receipt Date: 20150828
  Transmission Date: 20151125
  Serious: Yes (Other)
  Sender: FDA-Public Use
  Company Number: US-BIOGENIDEC-2015BI101032

PATIENT
  Age: 48 Year
  Sex: Female

DRUGS (1)
  1. TECFIDERA [Suspect]
     Active Substance: DIMETHYL FUMARATE
     Indication: MULTIPLE SCLEROSIS
     Route: 048
     Dates: start: 20131129

REACTIONS (7)
  - Nuclear magnetic resonance imaging abnormal [Unknown]
  - Petit mal epilepsy [Unknown]
  - Menopausal disorder [Unknown]
  - Unresponsive to stimuli [Unknown]
  - Fall [Recovered/Resolved]
  - Mobility decreased [Unknown]
  - Memory impairment [Unknown]

NARRATIVE: CASE EVENT DATE: 2014
